FAERS Safety Report 19625205 (Version 1)
Quarter: 2021Q3

REPORT INFORMATION
  Report Type: Spontaneous
  Country: CH (occurrence: CH)
  Receive Date: 20210728
  Receipt Date: 20210728
  Transmission Date: 20211014
  Serious: Yes (Hospitalization, Other)
  Sender: FDA-Public Use
  Company Number: CH-JNJFOC-20210649201

PATIENT
  Age: 8 Decade
  Sex: Female

DRUGS (14)
  1. RIVAROXABAN [Suspect]
     Active Substance: RIVAROXABAN
     Indication: PERIPHERAL ARTERIAL OCCLUSIVE DISEASE
     Dosage: 2.5 MG
     Route: 048
  2. EUTHYROX [Concomitant]
     Active Substance: LEVOTHYROXINE SODIUM
     Dosage: 75 UG, QD
  3. FERINJECT [Concomitant]
     Active Substance: FERRIC CARBOXYMALTOSE
  4. ASPIRIN CARDIO [Concomitant]
     Active Substance: ASPIRIN
     Route: 065
  5. ATORVASTATIN [Concomitant]
     Active Substance: ATORVASTATIN
     Dosage: 80 MG, QD
  6. CALCIMAGON D3 [Concomitant]
     Active Substance: CALCIUM\CHOLECALCIFEROL
     Dosage: UNK UNK, QD
  7. TORASEMID [Concomitant]
     Active Substance: TORSEMIDE
     Dosage: 10 MG, QD
  8. PANTOPRAZOL NYCOMED [Concomitant]
     Active Substance: PANTOPRAZOLE SODIUM
     Dosage: 40 MG, QD
  9. ASPIRIN CARDIO [Concomitant]
     Active Substance: ASPIRIN
     Dosage: 100 MG, QD
     Route: 065
  10. ZOLPIDEM TARTRATE. [Concomitant]
     Active Substance: ZOLPIDEM TARTRATE
     Dosage: 10 MG, QD
  11. ATACAND [Concomitant]
     Active Substance: CANDESARTAN CILEXETIL
     Dosage: 16 MG, QD
  12. MACROGOL;POTASSIUM CHLORIDE;SODIUM BICARBONATE;SODIUM CHLORIDE [Concomitant]
     Active Substance: POLYETHYLENE GLYCOL\POTASSIUM CHLORIDE\SODIUM BICARBONATE\SODIUM CHLORIDE
     Dosage: 1 DF, PRN
  13. MST CONTINUS [Concomitant]
     Active Substance: MORPHINE SULFATE
     Dosage: 10 MG, QD
  14. NOVALGIN (METAMIZOLE SODIUM) [Concomitant]
     Active Substance: METAMIZOLE SODIUM
     Dosage: 500 MG, QID

REACTIONS (4)
  - Haemoglobin decreased [Unknown]
  - Muscular weakness [Recovered/Resolved]
  - Gastrointestinal haemorrhage [Recovered/Resolved]
  - Dyspnoea [Recovered/Resolved]
